FAERS Safety Report 21839397 (Version 4)
Quarter: 2023Q1

REPORT INFORMATION
  Report Type: Spontaneous
  Country: CA (occurrence: CA)
  Receive Date: 20230109
  Receipt Date: 20230301
  Transmission Date: 20230417
  Serious: Yes (Hospitalization)
  Sender: FDA-Public Use
  Company Number: CA-KARYOPHARM THERAPEUTICS, INC.-2023KPT000052

PATIENT

DRUGS (3)
  1. XPOVIO [Suspect]
     Active Substance: SELINEXOR
     Indication: Plasma cell myeloma
     Dosage: 80 MG, WEEKLY FOR 5 WEEKS
     Route: 048
     Dates: start: 20221209, end: 202301
  2. DEXAMETHASONE [Concomitant]
     Active Substance: DEXAMETHASONE
     Dosage: UNK
  3. BORTEZOMIB [Concomitant]
     Active Substance: BORTEZOMIB
     Dosage: UNK

REACTIONS (8)
  - Septic shock [Unknown]
  - COVID-19 [Unknown]
  - Febrile neutropenia [Unknown]
  - Sepsis [Unknown]
  - Visual impairment [Unknown]
  - Hypotension [Unknown]
  - Decreased appetite [Not Recovered/Not Resolved]
  - Weight decreased [Not Recovered/Not Resolved]

NARRATIVE: CASE EVENT DATE: 20221225
